FAERS Safety Report 4557919-0 (Version None)
Quarter: 2005Q1

REPORT INFORMATION
  Report Type: 
  Country: None (occurrence: None)
  Receive Date: 20050121
  Receipt Date: 20040112
  Transmission Date: 20050727
  Serious: No
  Sender: FDA-Public Use
  Company Number: US-BRISTOL-MYERS SQUIBB COMPANY-12488409

PATIENT
  Sex: Male

DRUGS (13)
  1. SERZONE [Suspect]
     Indication: DEPRESSION
     Route: 048
     Dates: start: 19950601, end: 20020129
  2. FLEXERIL [Concomitant]
  3. PAXIL [Concomitant]
  4. ZANTAC [Concomitant]
  5. KLONOPIN [Concomitant]
  6. SYNTHROID [Concomitant]
  7. LORTAB [Concomitant]
  8. ROBAXIN [Concomitant]
  9. COMPAZINE [Concomitant]
  10. VIOXX [Concomitant]
  11. ZOLOFT [Concomitant]
  12. CELEBREX [Concomitant]
  13. FENTANYL [Concomitant]

REACTIONS (19)
  - ARTHRALGIA [None]
  - BLEEDING TIME PROLONGED [None]
  - CHEST PAIN [None]
  - DIZZINESS [None]
  - DRY MOUTH [None]
  - DUODENITIS [None]
  - HEPATIC STEATOSIS [None]
  - HYPOACUSIS [None]
  - HYPOAESTHESIA [None]
  - INSOMNIA [None]
  - LOSS OF CONSCIOUSNESS [None]
  - MYALGIA [None]
  - NAUSEA [None]
  - OESOPHAGITIS [None]
  - PALPITATIONS [None]
  - PHOTOPSIA [None]
  - PROSTATITIS [None]
  - TINNITUS [None]
  - VISUAL ACUITY REDUCED [None]
